FAERS Safety Report 13934487 (Version 2)
Quarter: 2017Q3

REPORT INFORMATION
  Report Type: Report from Study
  Country: US (occurrence: US)
  Receive Date: 20170905
  Receipt Date: 20170926
  Transmission Date: 20171127
  Serious: No
  Sender: FDA-Public Use
  Company Number: US-ALEXION PHARMACEUTICALS INC.-A201709820

PATIENT
  Sex: Female

DRUGS (1)
  1. SOLIRIS [Suspect]
     Active Substance: ECULIZUMAB
     Indication: HAEMOLYTIC URAEMIC SYNDROME
     Dosage: 1200 MG, Q2W
     Route: 042
     Dates: start: 20160210, end: 20170920

REACTIONS (8)
  - Scar [Unknown]
  - Oral herpes [Not Recovered/Not Resolved]
  - Increased viscosity of upper respiratory secretion [Unknown]
  - Rash [Unknown]
  - Systemic lupus erythematosus rash [Not Recovered/Not Resolved]
  - Cough [Unknown]
  - Otorrhoea [Not Recovered/Not Resolved]
  - Sinusitis [Not Recovered/Not Resolved]

NARRATIVE: CASE EVENT DATE: 20170630
